FAERS Safety Report 21917494 (Version 1)
Quarter: 2023Q1

REPORT INFORMATION
  Report Type: Other
  Country: DE (occurrence: DE)
  Receive Date: 20230126
  Receipt Date: 20230126
  Transmission Date: 20230417
  Serious: Yes (Congenital Anomaly, Other)
  Sender: FDA-Public Use
  Company Number: DE-MACLEODS PHARMACEUTICALS US LTD-MAC2023039434

PATIENT

DRUGS (6)
  1. ESCITALOPRAM [Suspect]
     Active Substance: ESCITALOPRAM OXALATE
     Indication: Product used for unknown indication
     Dosage: 10 MILLIGRAM, QD (0. - 38.5. GESTATIONAL WEEK), 1ST TRIMESTER
     Route: 064
     Dates: start: 20210110, end: 20211008
  2. PRAMIPEXOLE [Suspect]
     Active Substance: PRAMIPEXOLE
     Indication: Product used for unknown indication
     Dosage: 180 MICROGRAM, QD (0.18 [MG/D ], 22.2. - 38.5. GESTATIONAL WEEK), SECOND TRIMESTER
     Route: 064
  3. DOXEPIN [Suspect]
     Active Substance: DOXEPIN
     Indication: Product used for unknown indication
     Dosage: 50 MILLIGRAM, QD (0. - 38.5. GESTATIONAL WEEK)
     Route: 064
     Dates: start: 20210110, end: 20211008
  4. BOOSTRIX [Suspect]
     Active Substance: TETANUS TOXOID, REDUCED DIPHTHERIA TOXOID AND ACELLULAR PERTUSSIS VACCINE, ADSORBED ANTIGENS
     Indication: Product used for unknown indication
     Dosage: UNK (32.3-32.3. GESTATIONAL WEEK), 3RD TRIMESTER
     Route: 064
     Dates: start: 20210825, end: 20210825
  5. FOLIC ACID [Suspect]
     Active Substance: FOLIC ACID
     Indication: Product used for unknown indication
     Dosage: UNK (6.2. - 6.2. GESTATIONAL WEEK), 1ST TRIMESTER
     Route: 064
  6. BENSERAZIDE\LEVODOPA [Suspect]
     Active Substance: BENSERAZIDE\LEVODOPA
     Indication: Product used for unknown indication
     Dosage: 100 MILLIGRAM, QD (0. - 8.3. GESTATIONAL WEEK), 1ST TRIMESTER
     Route: 064
     Dates: start: 20210110, end: 20210310

REACTIONS (2)
  - Microcephaly [Unknown]
  - Foetal exposure during pregnancy [Unknown]
